FAERS Safety Report 16030072 (Version 1)
Quarter: 2019Q2

REPORT INFORMATION
  Report Type: Spontaneous
  Country: US (occurrence: US)
  Receive Date: 20190304
  Receipt Date: 20190304
  Transmission Date: 20190711
  Serious: Yes (Hospitalization)
  Sender: FDA-Public Use
  Company Number: None

PATIENT
  Age: 51 Year
  Sex: Male
  Weight: 117.45 kg

DRUGS (18)
  1. PANTOPRAZOLE 40MG [Concomitant]
     Active Substance: PANTOPRAZOLE SODIUM
  2. GABAPENTIN 600MG [Concomitant]
     Active Substance: GABAPENTIN
  3. CLONAZEPAM 1MG [Concomitant]
     Active Substance: CLONAZEPAM
  4. SPIRONOLACTONE 25MG [Concomitant]
     Active Substance: SPIRONOLACTONE
  5. ATENOLOL 25MG [Concomitant]
     Active Substance: ATENOLOL
  6. REPATHA [Concomitant]
     Active Substance: EVOLOCUMAB
  7. PRAMIPEXOLE. [Concomitant]
     Active Substance: PRAMIPEXOLE
  8. FARXIGA [Suspect]
     Active Substance: DAPAGLIFLOZIN PROPANEDIOL
     Indication: TYPE 2 DIABETES MELLITUS
     Route: 048
  9. ALBUTEROL. [Concomitant]
     Active Substance: ALBUTEROL
  10. DULOXETINE 60MG [Concomitant]
     Active Substance: DULOXETINE
  11. IBUPROFEN 800MG [Concomitant]
     Active Substance: IBUPROFEN
  12. HUMALOG [Concomitant]
     Active Substance: INSULIN LISPRO
  13. RAMILPRIL 10MG [Concomitant]
  14. ZOLPIDEM [Concomitant]
     Active Substance: ZOLPIDEM\ZOLPIDEM TARTRATE
  15. TRAZODONE [Concomitant]
     Active Substance: TRAZODONE HYDROCHLORIDE
  16. TRESIBA [Concomitant]
     Active Substance: INSULIN DEGLUDEC
  17. JANUMET 5/1000MG [Concomitant]
  18. CYCLOBENZAPRINE 10MG [Concomitant]
     Active Substance: CYCLOBENZAPRINE

REACTIONS (7)
  - Cardiac failure [None]
  - Renal failure [None]
  - Hepatic failure [None]
  - Amnesia [None]
  - Peroneal nerve palsy [None]
  - Brain oedema [None]
  - Compartment syndrome [None]

NARRATIVE: CASE EVENT DATE: 20181201
